FAERS Safety Report 7378964-6 (Version None)
Quarter: 2011Q1

REPORT INFORMATION
  Report Type: 
  Country: None (occurrence: None)
  Receive Date: 20110328
  Receipt Date: 20110321
  Transmission Date: 20110831
  Serious: Yes (Other)
  Sender: FDA-Public Use
  Company Number: FR-PFIZER INC-2011062772

PATIENT
  Age: 35 Year
  Sex: Female

DRUGS (1)
  1. RHINADVIL [Suspect]
     Dosage: 2 DF, 3X/DAY
     Dates: start: 20110125, end: 20110201

REACTIONS (4)
  - MEDICATION ERROR [None]
  - INCORRECT DOSE ADMINISTERED [None]
  - CHOKING [None]
  - PALPITATIONS [None]
